FAERS Safety Report 8032937-9 (Version None)
Quarter: 2011Q4

REPORT INFORMATION
  Report Type: 
  Country: None (occurrence: None)
  Receive Date: 20111202
  Receipt Date: 20100804
  Transmission Date: 20120403
  Serious: Yes (Hospitalization, Other)
  Sender: FDA-Public Use
  Company Number: 2010SP042538

PATIENT
  Age: 42 Year
  Sex: Female
  Weight: 99.3377 kg

DRUGS (3)
  1. PHENTERMINE [Concomitant]
  2. NUVARING [Suspect]
     Indication: CONTRACEPTION
     Dosage: 1 DF; QM; VAG
     Route: 067
     Dates: start: 20060101, end: 20080801
  3. AGGRENOX [Suspect]
     Indication: CEREBROVASCULAR ACCIDENT

REACTIONS (11)
  - CEREBROVASCULAR ACCIDENT [None]
  - HEADACHE [None]
  - PAPILLOMA VIRAL INFECTION [None]
  - ANOGENITAL WARTS [None]
  - MENORRHAGIA [None]
  - VULVOVAGINITIS [None]
  - RHINITIS ALLERGIC [None]
  - DYSPHAGIA [None]
  - THROMBOSIS [None]
  - VARICOSE VEIN [None]
  - HYPERLIPIDAEMIA [None]
